FAERS Safety Report 20985103 (Version 1)
Quarter: 2022Q2

REPORT INFORMATION
  Report Type: Spontaneous
  Country: US (occurrence: None)
  Receive Date: 20220621
  Receipt Date: 20220621
  Transmission Date: 20220721
  Serious: No
  Sender: FDA-Public Use
  Company Number: US-ROCHE-2829525

PATIENT
  Age: 56 Year
  Sex: Female

DRUGS (2)
  1. XELODA [Suspect]
     Active Substance: CAPECITABINE
     Indication: Product used for unknown indication
     Route: 048
     Dates: start: 202101
  2. XELODA [Suspect]
     Active Substance: CAPECITABINE
     Dosage: 2500 MG IN THE MORNING AND 1500 MG IN THE EVENING
     Route: 048

REACTIONS (2)
  - Gingivitis [Recovered/Resolved]
  - Fall [Unknown]

NARRATIVE: CASE EVENT DATE: 20210329
